FAERS Safety Report 9919510 (Version 3)
Quarter: 2014Q2

REPORT INFORMATION
  Report Type: Spontaneous
  Country: US (occurrence: US)
  Receive Date: 20140224
  Receipt Date: 20140416
  Transmission Date: 20141212
  Serious: Yes (Hospitalization)
  Sender: FDA-Public Use
  Company Number: US-ACTELION-A-US2014-94543

PATIENT
  Age: 6 Month
  Sex: Female

DRUGS (3)
  1. TRACLEER [Suspect]
     Indication: PULMONARY ARTERIAL HYPERTENSION
     Dosage: 16.25 MG, QD
     Route: 048
     Dates: start: 20140114, end: 201403
  2. SILDENAFIL [Concomitant]
  3. REMODULIN [Concomitant]

REACTIONS (5)
  - Liver injury [Unknown]
  - Rhinovirus infection [Recovering/Resolving]
  - Pulmonary arterial hypertension [Unknown]
  - Disease complication [Unknown]
  - Pulmonary hypertensive crisis [Unknown]
